FAERS Safety Report 19483744 (Version 1)
Quarter: 2021Q3

REPORT INFORMATION
  Report Type: Spontaneous
  Country: US (occurrence: US)
  Receive Date: 20210701
  Receipt Date: 20210701
  Transmission Date: 20211014
  Serious: No
  Sender: FDA-Public Use
  Company Number: US-ROCHE-2728009

PATIENT
  Sex: Male
  Weight: 83.99 kg

DRUGS (18)
  1. GLEEVEC [Concomitant]
     Active Substance: IMATINIB MESYLATE
  2. PANTOPRAZOLE [Concomitant]
     Active Substance: PANTOPRAZOLE
  3. CLONAZEPAM. [Suspect]
     Active Substance: CLONAZEPAM
     Indication: PRODUCT USED FOR UNKNOWN INDICATION
     Route: 065
  4. COENZYME Q10 [Concomitant]
     Active Substance: DIETARY SUPPLEMENT\UBIDECARENONE
  5. FUROSEMIDE. [Concomitant]
     Active Substance: FUROSEMIDE
  6. FISH OIL [Concomitant]
     Active Substance: FISH OIL
  7. VITAMIN D3 [Concomitant]
     Active Substance: CHOLECALCIFEROL
  8. ECONAZOLE NITRATE. [Concomitant]
     Active Substance: ECONAZOLE NITRATE
  9. INDOMETHACIN. [Concomitant]
     Active Substance: INDOMETHACIN
  10. LORATADINE. [Concomitant]
     Active Substance: LORATADINE
  11. NIFEDIPINE. [Concomitant]
     Active Substance: NIFEDIPINE
  12. PRAVASTATIN. [Concomitant]
     Active Substance: PRAVASTATIN
  13. OXYCODONE [Concomitant]
     Active Substance: OXYCODONE
  14. BOSULIF [Suspect]
     Active Substance: BOSUTINIB MONOHYDRATE
     Indication: PRODUCT USED FOR UNKNOWN INDICATION
     Route: 048
  15. MAGNESIUM [Concomitant]
     Active Substance: MAGNESIUM
  16. NARCAN [Concomitant]
     Active Substance: NALOXONE HYDROCHLORIDE
  17. EUTHYROX [Concomitant]
     Active Substance: LEVOTHYROXINE SODIUM
  18. SPRYCEL [Concomitant]
     Active Substance: DASATINIB

REACTIONS (1)
  - Gout [Unknown]
